FAERS Safety Report 23608216 (Version 1)
Quarter: 2024Q1

REPORT INFORMATION
  Report Type: Spontaneous
  Country: CA (occurrence: CA)
  Receive Date: 20240307
  Receipt Date: 20240307
  Transmission Date: 20240409
  Serious: Yes (Life-Threatening, Hospitalization, Other)
  Sender: FDA-Public Use
  Company Number: CA-009507513-2403CAN000801

PATIENT
  Age: 85 Year
  Sex: Male

DRUGS (8)
  1. JANUMET [Suspect]
     Active Substance: METFORMIN HYDROCHLORIDE\SITAGLIPTIN PHOSPHATE
     Indication: Diabetes mellitus
     Dosage: 1000 MILLIGRAM, 2 EVERY 1 DAY
     Route: 065
  2. ASPIRIN [Concomitant]
     Active Substance: ASPIRIN
     Dosage: FORMULATION: NOT SPECIFIED
     Route: 065
  3. ATORVASTATIN [Concomitant]
     Active Substance: ATORVASTATIN
     Dosage: FORMULATION: NOT SPECIFIED
     Route: 065
  4. BASAGLAR [Concomitant]
     Active Substance: INSULIN GLARGINE
     Dosage: FORMULATION: SOLUTION SUBCUTANEOUS
     Route: 065
  5. LASIX [Concomitant]
     Active Substance: FUROSEMIDE
     Dosage: FORMULATION: NOT SPECIFIED
     Route: 065
  6. LATANOPROST;TIMOLOL [Concomitant]
     Dosage: FORMULATION: SOLUTION OPHTHALMIC
     Route: 065
  7. METOPROLOL [Concomitant]
     Active Substance: METOPROLOL
     Dosage: FORMULATION: NOT SPECIFIED
     Route: 065
  8. RAMIPRIL [Concomitant]
     Active Substance: RAMIPRIL
     Dosage: FORMULATION: NOT SPECIFIED
     Route: 065

REACTIONS (4)
  - Acute kidney injury [Recovered/Resolved with Sequelae]
  - Cardiac arrest [Recovered/Resolved with Sequelae]
  - Dialysis [Recovered/Resolved with Sequelae]
  - Hyperkalaemia [Recovered/Resolved with Sequelae]
